FAERS Safety Report 15789246 (Version 3)
Quarter: 2019Q2

REPORT INFORMATION
  Report Type: Spontaneous
  Country: US (occurrence: US)
  Receive Date: 20190104
  Receipt Date: 20190430
  Transmission Date: 20190711
  Serious: No
  Sender: FDA-Public Use
  Company Number: US-PFIZER INC-2018536764

PATIENT
  Age: 62 Year
  Sex: Female

DRUGS (1)
  1. OXAPROZIN. [Suspect]
     Active Substance: OXAPROZIN
     Dosage: UNK

REACTIONS (2)
  - Vomiting [Unknown]
  - Abdominal discomfort [Unknown]
